FAERS Safety Report 15518675 (Version 1)
Quarter: 2018Q4

REPORT INFORMATION
  Report Type: Spontaneous
  Country: US (occurrence: US)
  Receive Date: 20181017
  Receipt Date: 20181017
  Transmission Date: 20190205
  Serious: No
  Sender: FDA-Public Use
  Company Number: US-SA-2018SA279989

PATIENT
  Age: 74 Year
  Sex: Male

DRUGS (2)
  1. LANTUS [Suspect]
     Active Substance: INSULIN GLARGINE
     Indication: TYPE 2 DIABETES MELLITUS
     Dosage: 40 U, QD
     Dates: start: 2008
  2. NOVOLOG [Suspect]
     Active Substance: INSULIN ASPART
     Dosage: UNK UNK, UNK

REACTIONS (3)
  - Cough [Unknown]
  - Device operational issue [Unknown]
  - Product storage error [Unknown]
